FAERS Safety Report 21700609 (Version 1)
Quarter: 2022Q4

REPORT INFORMATION
  Report Type: Spontaneous
  Country: US (occurrence: None)
  Receive Date: 20221207
  Receipt Date: 20221207
  Transmission Date: 20230113
  Serious: Yes (Hospitalization)
  Sender: FDA-Public Use
  Company Number: None

PATIENT
  Age: 93 Year
  Sex: Male

DRUGS (1)
  1. WARFARIN SODIUM [Suspect]
     Active Substance: WARFARIN SODIUM
     Indication: Atrial fibrillation
     Dates: start: 20180411, end: 20221116

REACTIONS (6)
  - Cerebrovascular accident [None]
  - Atrial fibrillation [None]
  - Cardiomyopathy [None]
  - COVID-19 [None]
  - Urosepsis [None]
  - Escherichia infection [None]

NARRATIVE: CASE EVENT DATE: 20221107
